FAERS Safety Report 7688813-4 (Version None)
Quarter: 2011Q3

REPORT INFORMATION
  Report Type: 
  Country: None (occurrence: None)
  Receive Date: 20110817
  Receipt Date: 20110808
  Transmission Date: 20111222
  Serious: Yes (Other)
  Sender: FDA-Public Use
  Company Number: JP-ASTRAZENECA-2011SE45046

PATIENT
  Age: 20 Year
  Sex: Female

DRUGS (2)
  1. DIPRIVAN [Suspect]
     Route: 042
     Dates: start: 20110726, end: 20110726
  2. ULTIVA [Concomitant]
     Route: 042

REACTIONS (1)
  - METABOLIC ACIDOSIS [None]
